FAERS Safety Report 9559682 (Version 1)
Quarter: 2013Q2

REPORT INFORMATION
  Report Type: Spontaneous
  Country: US (occurrence: None)
  Receive Date: 20130617
  Receipt Date: 20130617
  Transmission Date: 20140414
  Serious: Yes (Other)
  Sender: FDA-Public Use
  Company Number: EUS-2013-00232

PATIENT
  Sex: 0

DRUGS (1)
  1. ERWINASE (ASPARAGINASE) [Suspect]
     Indication: NON-HODGKIN^S LYMPHOMA

REACTIONS (3)
  - Intracardiac thrombus [None]
  - Intracardiac thrombus [None]
  - Renal vein thrombosis [None]
